FAERS Safety Report 9613471 (Version 1)
Quarter: 2013Q4

REPORT INFORMATION
  Report Type: Spontaneous
  Country: US (occurrence: US)
  Receive Date: 20131010
  Receipt Date: 20131010
  Transmission Date: 20140711
  Serious: No
  Sender: FDA-Public Use
  Company Number: US-PFIZER INC-2013288174

PATIENT
  Age: 66 Year
  Sex: Male
  Weight: 63.49 kg

DRUGS (4)
  1. CELEBREX [Suspect]
     Indication: PAIN
     Dosage: 200 MG (2 CAPSULES OF 100MG), 1X/DAY
     Route: 048
     Dates: start: 2011, end: 201309
  2. CELEBREX [Suspect]
     Dosage: 200 MG, DAILY
     Route: 048
     Dates: start: 201309
  3. NEURONTIN [Concomitant]
     Dosage: UNK
  4. ATENOLOL [Concomitant]
     Indication: HYPERTENSION
     Dosage: 25 MG, UNK

REACTIONS (1)
  - Pain [Unknown]
